FAERS Safety Report 4917083-2 (Version None)
Quarter: 2006Q1

REPORT INFORMATION
  Report Type: 
  Country: None (occurrence: None)
  Receive Date: 20060221
  Receipt Date: 20050622
  Transmission Date: 20060701
  Serious: Yes (Other)
  Sender: FDA-Public Use
  Company Number: PHEH2005US07173

PATIENT
  Age: 64 Year
  Sex: Male

DRUGS (4)
  1. ZOMETA [Suspect]
     Indication: MULTIPLE MYELOMA
     Dosage: 4 MG UNSPECIFIED
     Dates: start: 20030512, end: 20030811
  2. ZOMETA [Suspect]
     Dates: start: 20050201, end: 20050601
  3. THALIDOMID [Concomitant]
     Indication: MULTIPLE MYELOMA
     Dosage: 200 MG, QD
  4. DECADRON SRC [Concomitant]
     Indication: MULTIPLE MYELOMA
     Dosage: 20 MG EVERY WEEK

REACTIONS (5)
  - BONE DISORDER [None]
  - DENTAL TREATMENT [None]
  - ORAL SOFT TISSUE DISORDER [None]
  - OSTEONECROSIS [None]
  - WOUND DEBRIDEMENT [None]
